FAERS Safety Report 15889985 (Version 3)
Quarter: 2019Q2

REPORT INFORMATION
  Report Type: Spontaneous
  Country: JP (occurrence: JP)
  Receive Date: 20190130
  Receipt Date: 20190418
  Transmission Date: 20190711
  Serious: Yes (Death, Life-Threatening)
  Sender: FDA-Public Use
  Company Number: JP-BIOCRYST PHARMACEUTICALS, INC.-2019BCR00030

PATIENT
  Age: 90 Year
  Sex: Male

DRUGS (6)
  1. RAPIACTA [Suspect]
     Active Substance: PERAMIVIR
     Indication: INFLUENZA
     Dosage: 200 MG, 1X/DAY
     Route: 042
     Dates: start: 20190116, end: 20190116
  2. VITAMIN B COMPLEX [Suspect]
     Active Substance: CYANOCOBALAMIN\DEXPANTHENOL\NIACINAMIDE\PYRIDOXINE HYDROCHLORIDE\RIBOFLAVIN 5^-PHOSPHATE SODIUM\THIAMINE HYDROCHLORIDE\VITAMIN B COMPLEX
     Indication: PNEUMONIA
     Dosage: 10 ML, 1X/DAY
     Route: 042
     Dates: start: 20181214, end: 20190116
  3. TRIFLUID [Suspect]
     Active Substance: CALCIUM CHLORIDE\DEXTROSE\ELECTROLYTES NOS\FRUCTOSE\XYLITOL\ZINC SULFATE
     Indication: PNEUMONIA
     Dosage: 1000 ML, 1X/DAY
     Route: 042
     Dates: start: 20181214, end: 20190116
  4. FAMOTIDINE. [Suspect]
     Active Substance: FAMOTIDINE
     Indication: GASTROINTESTINAL HAEMORRHAGE
     Dosage: 20 MG, 1X/DAY
     Route: 042
     Dates: start: 20190109, end: 20190116
  5. LACTOSE HYDRATE [Suspect]
     Active Substance: LACTOSE
     Indication: PNEUMONIA
     Dosage: 1 G, 1X/DAY
     Dates: start: 20190115, end: 20190116
  6. MYOCOR [Suspect]
     Active Substance: NITROGLYCERIN
     Indication: HYPERTENSION
     Dosage: 5 MG, 1X/DAY
     Route: 042
     Dates: start: 20190109, end: 20190116

REACTIONS (2)
  - Respiratory failure [Fatal]
  - Shock [Not Recovered/Not Resolved]

NARRATIVE: CASE EVENT DATE: 20190116
